FAERS Safety Report 9853772 (Version 1)
Quarter: 2014Q1

REPORT INFORMATION
  Report Type: Spontaneous
  Country: US (occurrence: US)
  Receive Date: 20140129
  Receipt Date: 20140129
  Transmission Date: 20141002
  Serious: No
  Sender: FDA-Public Use
  Company Number: US-GLAXOSMITHKLINE-A1027575A

PATIENT
  Age: 80 Year
  Sex: Female
  Weight: 56.8 kg

DRUGS (7)
  1. BUPROPION HYDROCHLORIDE [Suspect]
     Indication: DEPRESSION
     Dates: start: 201112
  2. LEVOTHYROXINE [Concomitant]
  3. ATENOLOL [Concomitant]
  4. ALPRAZOLAM [Concomitant]
  5. ZOLPIDEM [Concomitant]
  6. BUMEX [Concomitant]
  7. ANTIVERT [Concomitant]

REACTIONS (1)
  - Hallucination [Recovered/Resolved]
